FAERS Safety Report 10310546 (Version 1)
Quarter: 2014Q3

REPORT INFORMATION
  Report Type: Spontaneous
  Country: US (occurrence: None)
  Receive Date: 20140715
  Receipt Date: 20140715
  Transmission Date: 20150326
  Serious: Yes (Other)
  Sender: FDA-Public Use
  Company Number: ADE14-024

PATIENT
  Age: 42 Year
  Sex: Male
  Weight: 95.3 kg

DRUGS (14)
  1. OFIRMEV [Concomitant]
     Active Substance: ACETAMINOPHEN
  2. FENTANYL. [Concomitant]
     Active Substance: FENTANYL
  3. GLYCOPYRROLATE. [Concomitant]
     Active Substance: GLYCOPYRROLATE
  4. VECURONIUM [Concomitant]
     Active Substance: VECURONIUM BROMIDE
  5. LIDOCAINE. [Concomitant]
     Active Substance: LIDOCAINE
  6. DEXAMETHASONE. [Concomitant]
     Active Substance: DEXAMETHASONE
  7. ROCURONIUM BROMIDE INJECTION [Suspect]
     Active Substance: ROCURONIUM BROMIDE
     Indication: MUSCLE RELAXANT THERAPY
     Dosage: 50MG, TOTAL DOSE, IV
     Route: 042
     Dates: start: 20140625, end: 20140625
  8. SEVOFLURANE/DESFLURANE [Concomitant]
  9. PROPOFOL 200MG [Concomitant]
  10. ONDANSETRON [Concomitant]
     Active Substance: ONDANSETRON
  11. NEOSTIGMINE [Concomitant]
     Active Substance: NEOSTIGMINE
  12. MIDAZOLAM [Concomitant]
     Active Substance: MIDAZOLAM\MIDAZOLAM HYDROCHLORIDE
  13. HYDROMORPHONE [Concomitant]
     Active Substance: HYDROMORPHONE
  14. LACTATED RINGERS [Concomitant]
     Active Substance: CALCIUM CHLORIDE\POTASSIUM CHLORIDE\SODIUM CHLORIDE\SODIUM LACTATE

REACTIONS (1)
  - Drug ineffective [None]

NARRATIVE: CASE EVENT DATE: 20140625
